FAERS Safety Report 20954659 (Version 1)
Quarter: 2022Q2

REPORT INFORMATION
  Report Type: Report from Study
  Country: CA (occurrence: CA)
  Receive Date: 20220614
  Receipt Date: 20220614
  Transmission Date: 20220721
  Serious: Yes (Other)
  Sender: FDA-Public Use
  Company Number: CA-JNJFOC-20220612287

PATIENT
  Age: 2 Decade
  Sex: Female

DRUGS (1)
  1. REMICADE [Suspect]
     Active Substance: INFLIXIMAB
     Indication: Crohn^s disease
     Route: 042
     Dates: start: 20180913

REACTIONS (4)
  - Crohn^s disease [Not Recovered/Not Resolved]
  - Eczema [Unknown]
  - Staphylococcal infection [Unknown]
  - Drug ineffective [Unknown]
